FAERS Safety Report 9960725 (Version 1)
Quarter: 2014Q1

REPORT INFORMATION
  Report Type: Report from Study
  Country: US (occurrence: US)
  Receive Date: 20140305
  Receipt Date: 20140305
  Transmission Date: 20141002
  Serious: No
  Sender: FDA-Public Use
  Company Number: US-ABBVIE-13P-163-1128269-00

PATIENT
  Age: 48 Year
  Sex: Female

DRUGS (9)
  1. HUMIRA [Suspect]
     Indication: CROHN^S DISEASE
     Dates: start: 201302, end: 201304
  2. HUMIRA [Suspect]
     Dates: start: 201304
  3. ARTHROTEC [Concomitant]
     Indication: PRODUCT USED FOR UNKNOWN INDICATION
  4. JINTELI [Concomitant]
     Indication: HORMONE REPLACEMENT THERAPY
  5. TRAMADOL [Concomitant]
     Indication: PRODUCT USED FOR UNKNOWN INDICATION
  6. BIOTIN [Concomitant]
     Indication: VITAMIN SUPPLEMENTATION
  7. HYDROXYTRYPTOPHAN 5 HTP [Concomitant]
     Indication: INCREASED APPETITE
  8. HYDROXYTRYPTOPHAN 5 HTP [Concomitant]
     Indication: MOOD ALTERED
  9. PROBIOTICS [Concomitant]
     Indication: PRODUCT USED FOR UNKNOWN INDICATION
     Dosage: 10 BILLION UNITS DAILY

REACTIONS (1)
  - Crohn^s disease [Not Recovered/Not Resolved]
